FAERS Safety Report 23562278 (Version 1)
Quarter: 2024Q1

REPORT INFORMATION
  Report Type: Spontaneous
  Country: FR (occurrence: FR)
  Receive Date: 20240226
  Receipt Date: 20240226
  Transmission Date: 20240410
  Serious: Yes (Other)
  Sender: FDA-Public Use
  Company Number: None

PATIENT
  Age: 51 Year
  Sex: Male
  Weight: 80 kg

DRUGS (7)
  1. POTASSIUM CHLORIDE [Suspect]
     Active Substance: POTASSIUM CHLORIDE
     Indication: Arrhythmic storm
     Dosage: 600 MG , QD
     Route: 048
     Dates: start: 20231222, end: 20231228
  2. AMIODARONE HYDROCHLORIDE [Suspect]
     Active Substance: AMIODARONE HYDROCHLORIDE
     Indication: Left ventricular failure
     Dosage: 200 MG , QD
     Route: 048
     Dates: start: 20231226, end: 20231228
  3. LANSOPRAZOLE [Suspect]
     Active Substance: LANSOPRAZOLE
     Indication: Gastrointestinal disorder prophylaxis
     Dosage: 15 MG , QD
     Route: 048
     Dates: start: 20231226, end: 20231229
  4. PANTOPRAZOLE [Suspect]
     Active Substance: PANTOPRAZOLE
     Indication: Gastrointestinal disorder prophylaxis
     Dosage: 80 MG , QD
     Route: 048
     Dates: start: 20231222, end: 20231225
  5. LOVENOX [Suspect]
     Active Substance: ENOXAPARIN SODIUM
     Indication: Anticoagulant therapy
     Dosage: 4000 IU , QD
     Route: 058
     Dates: start: 20231225, end: 20231229
  6. VISIPAQUE [Suspect]
     Active Substance: IODIXANOL
     Indication: Angiocardiogram
     Dosage: 105 MG , TOTAL
     Route: 042
     Dates: start: 20231222, end: 20231222
  7. VISIPAQUE [Suspect]
     Active Substance: IODIXANOL
     Dosage: 25 ML , TOTAL
     Route: 042
     Dates: start: 20231225, end: 20231225

REACTIONS (1)
  - Rash maculo-papular [Recovered/Resolved]
